FAERS Safety Report 9321554 (Version 1)
Quarter: 2013Q2

REPORT INFORMATION
  Report Type: Spontaneous
  Country: AU (occurrence: None)
  Receive Date: 20130529
  Receipt Date: 20130529
  Transmission Date: 20140414
  Serious: Yes (Death, Other)
  Sender: FDA-Public Use
  Company Number: 2013P1006234

PATIENT
  Age: 29 Year
  Sex: Female

DRUGS (3)
  1. CITALOPRAM [Suspect]
  2. COCAINE [Suspect]
  3. MORPHINE [Suspect]

REACTIONS (6)
  - Sudden death [None]
  - Pulmonary oedema [None]
  - Weight decreased [None]
  - Toxicity to various agents [None]
  - Hyperthermia [None]
  - Tachycardia [None]
